FAERS Safety Report 7900757-9 (Version None)
Quarter: 2011Q4

REPORT INFORMATION
  Report Type: 
  Country: None (occurrence: None)
  Receive Date: 20111108
  Receipt Date: 20111102
  Transmission Date: 20120403
  Serious: Yes (Death)
  Sender: FDA-Public Use
  Company Number: DE-CELGENEUS-062-21660-11110273

PATIENT

DRUGS (2)
  1. ABRAXANE [Suspect]
     Route: 050
  2. VIDAZA [Suspect]
     Route: 050

REACTIONS (1)
  - DEATH [None]
